FAERS Safety Report 5913420-0 (Version None)
Quarter: 2008Q4

REPORT INFORMATION
  Report Type: 
  Country: None (occurrence: None)
  Receive Date: 20081007
  Receipt Date: 20080922
  Transmission Date: 20090506
  Serious: Yes (Other)
  Sender: FDA-Public Use
  Company Number: 2008S1017160

PATIENT
  Sex: Female

DRUGS (2)
  1. BISOPROLOL FUMARATE [Suspect]
     Indication: DRUG USE FOR UNKNOWN INDICATION
     Dosage: 10 MG;
  2. DIAZEPAM [Concomitant]

REACTIONS (2)
  - ARRHYTHMIA [None]
  - FATIGUE [None]
